FAERS Safety Report 11583835 (Version 1)
Quarter: 2015Q4

REPORT INFORMATION
  Report Type: Spontaneous
  Country: US (occurrence: US)
  Receive Date: 20151001
  Receipt Date: 20151001
  Transmission Date: 20160304
  Serious: No
  Sender: FDA-Public Use
  Company Number: US-ROCHE-666625

PATIENT
  Age: 70 Year
  Sex: Male
  Weight: 72.6 kg

DRUGS (2)
  1. PEGASYS [Suspect]
     Active Substance: PEGINTERFERON ALFA-2A
     Indication: HEPATITIS C
     Dosage: RECEIVED THREE COURSES
     Route: 065
     Dates: start: 200812, end: 20091026
  2. COPEGUS [Suspect]
     Active Substance: RIBAVIRIN
     Indication: HEPATITIS C
     Dosage: RECEIVED THREE COURSES
     Route: 048
     Dates: start: 200812, end: 20091028

REACTIONS (4)
  - Yellow skin [Unknown]
  - Chromaturia [Unknown]
  - Cough [Unknown]
  - Pyrexia [Unknown]

NARRATIVE: CASE EVENT DATE: 20091028
